FAERS Safety Report 5469355-3 (Version None)
Quarter: 2007Q3

REPORT INFORMATION
  Report Type: 
  Country: None (occurrence: None)
  Receive Date: 20070924
  Receipt Date: 20070906
  Transmission Date: 20080115
  Serious: Yes (Hospitalization)
  Sender: FDA-Public Use
  Company Number: 100#08#2007-03463

PATIENT
  Age: 65 Year
  Sex: Female

DRUGS (3)
  1. WARFARIN SODIUM [Suspect]
     Indication: ATRIAL FIBRILLATION
  2. WARFARIN SODIUM [Suspect]
     Indication: MITRAL VALVE REPLACEMENT
  3. FENOFIBRATE [Suspect]
     Indication: DYSLIPIDAEMIA

REACTIONS (14)
  - ABNORMAL CLOTTING FACTOR [None]
  - ATRIAL FIBRILLATION [None]
  - CARDIOMYOPATHY [None]
  - COAGULOPATHY [None]
  - DRUG INTERACTION [None]
  - DYSLIPIDAEMIA [None]
  - GASTROINTESTINAL HAEMORRHAGE [None]
  - HAEMARTHROSIS [None]
  - HYPERTRIGLYCERIDAEMIA [None]
  - INTERNATIONAL NORMALISED RATIO INCREASED [None]
  - MELAENA [None]
  - NORMOCHROMIC NORMOCYTIC ANAEMIA [None]
  - RENAL FAILURE ACUTE [None]
  - WEIGHT BEARING DIFFICULTY [None]
